FAERS Safety Report 7434341-0 (Version None)
Quarter: 2011Q2

REPORT INFORMATION
  Report Type: 
  Country: None (occurrence: None)
  Receive Date: 20110425
  Receipt Date: 20110421
  Transmission Date: 20111010
  Serious: No
  Sender: FDA-Public Use
  Company Number: US-PFIZER INC-2011087480

PATIENT
  Sex: Female
  Weight: 86.168 kg

DRUGS (6)
  1. CHANTIX [Suspect]
     Indication: SMOKING CESSATION THERAPY
     Dosage: 0.5 MG, DAILY
     Route: 048
     Dates: start: 20110401
  2. RAMIPRIL [Concomitant]
     Indication: HYPERTENSION
     Dosage: UNK
  3. TOPAMAX [Concomitant]
     Indication: BIPOLAR DISORDER
     Dosage: UNK
  4. POTASSIUM [Concomitant]
     Indication: MINERAL SUPPLEMENTATION
     Dosage: UNK
  5. IRON SUPPLEMENT [Concomitant]
     Indication: ANAEMIA
  6. CLONIDINE [Concomitant]
     Indication: HYPERTENSION
     Dosage: UNK

REACTIONS (1)
  - DRUG INEFFECTIVE [None]
